FAERS Safety Report 7625870-5 (Version None)
Quarter: 2011Q3

REPORT INFORMATION
  Report Type: 
  Country: None (occurrence: None)
  Receive Date: 20110721
  Receipt Date: 20110711
  Transmission Date: 20111222
  Serious: Yes (Other)
  Sender: FDA-Public Use
  Company Number: BR-JNJFOC-20110702713

PATIENT
  Sex: Male
  Weight: 120 kg

DRUGS (5)
  1. CHLORTHALIDONE [Concomitant]
  2. STELARA [Suspect]
     Indication: PSORIASIS
     Route: 058
     Dates: start: 20110511, end: 20110615
  3. ALDACTONE [Concomitant]
  4. LOSARTAN POTASSIUM [Concomitant]
     Indication: HYPERTENSION
  5. AMLODIPINE [Concomitant]

REACTIONS (2)
  - MEDICATION ERROR [None]
  - TUBERCULIN TEST POSITIVE [None]
